FAERS Safety Report 24559386 (Version 1)
Quarter: 2024Q4

REPORT INFORMATION
  Report Type: Report from Study
  Country: US (occurrence: US)
  Receive Date: 20241029
  Receipt Date: 20241029
  Transmission Date: 20250114
  Serious: Yes (Hospitalization, Other)
  Sender: TAKEDA
  Company Number: US-TAKEDA-2024TUS107147

PATIENT
  Age: 67 Year
  Sex: Female

DRUGS (1)
  1. FRUQUINTINIB [Suspect]
     Active Substance: FRUQUINTINIB
     Indication: Colon cancer
     Dosage: 5 MILLIGRAM
     Route: 048
     Dates: start: 20241004

REACTIONS (9)
  - Disorientation [Unknown]
  - Illness [Unknown]
  - Blood pressure increased [Unknown]
  - Clostridium difficile infection [Unknown]
  - Headache [Unknown]
  - Fall [Unknown]
  - Decreased appetite [Unknown]
  - Migraine [Unknown]
  - Nausea [Unknown]

NARRATIVE: CASE EVENT DATE: 20241001
